FAERS Safety Report 13163760 (Version 2)
Quarter: 2017Q1

REPORT INFORMATION
  Report Type: Spontaneous
  Country: IL (occurrence: IL)
  Receive Date: 20170130
  Receipt Date: 20170302
  Transmission Date: 20170428
  Serious: Yes (Other)
  Sender: FDA-Public Use
  Company Number: IL-TEVA-731739ACC

PATIENT
  Age: 79 Year
  Sex: Female

DRUGS (10)
  1. BONDORMIN 0.25MG [Concomitant]
     Dates: start: 20160303
  2. ACTONEL 150 MG ONCE M 1T [Concomitant]
     Dates: start: 20110918
  3. NEXIUM 20MG [Concomitant]
     Dates: start: 20161208
  4. FLIXONASE NASAL SPRAY [Concomitant]
     Active Substance: FLUTICASONE PROPIONATE
     Dates: start: 20151118
  5. ZOFRAN 8MG [Concomitant]
     Dates: start: 20170113
  6. RAMIPRIL. [Concomitant]
     Active Substance: RAMIPRIL
     Dates: start: 20151118
  7. TRITACE 2.5 MG [Concomitant]
     Dates: start: 20151118
  8. EUTHYROX [Concomitant]
     Active Substance: LEVOTHYROXINE SODIUM
     Dates: start: 20120711
  9. TELFAST 180MG [Concomitant]
     Dates: start: 20151118
  10. IMATINIB TEVA [Suspect]
     Active Substance: IMATINIB
     Indication: CHRONIC MYELOID LEUKAEMIA
     Dosage: 4 DOSAGE FORMS DAILY; 1 DOSAGE FORM = 100 MG, TOOK TWICE A DAY 2 TABLET OF 100 MG
     Route: 048
     Dates: start: 201607

REACTIONS (5)
  - Philadelphia chromosome positive [Unknown]
  - Diarrhoea [Unknown]
  - Myalgia [Unknown]
  - Oedema [Unknown]
  - Product substitution issue [Unknown]

NARRATIVE: CASE EVENT DATE: 201607
